FAERS Safety Report 4848565-X (Version None)
Quarter: 2005Q4

REPORT INFORMATION
  Report Type: 
  Country: None (occurrence: None)
  Receive Date: 20051206
  Receipt Date: 20051115
  Transmission Date: 20060501
  Serious: Yes (Other)
  Sender: FDA-Public Use
  Company Number: US200511001019

PATIENT
  Age: 80 Year
  Sex: Female

DRUGS (5)
  1. FORTEO [Suspect]
     Indication: OSTEOPOROSIS
     Dates: start: 20050929, end: 20051113
  2. FORTEO PEN (FORTEO PEN) [Concomitant]
  3. PEN, DISPOSABLE [Concomitant]
  4. ESOMEPRAZOLE [Concomitant]
  5. TEGRETOL [Concomitant]

REACTIONS (4)
  - ABASIA [None]
  - DIZZINESS [None]
  - DYSSTASIA [None]
  - PHARMACEUTICAL PRODUCT COMPLAINT [None]
